FAERS Safety Report 20843691 (Version 1)
Quarter: 2022Q2

REPORT INFORMATION
  Report Type: Spontaneous
  Country: US (occurrence: None)
  Receive Date: 20220517
  Receipt Date: 20220517
  Transmission Date: 20220720
  Serious: No
  Sender: FDA-Public Use
  Company Number: None

PATIENT
  Age: 33 Year
  Sex: Male

DRUGS (7)
  1. INGREZZA [Suspect]
     Active Substance: VALBENAZINE
     Indication: Tardive dyskinesia
     Dates: start: 20220103, end: 20220425
  2. GUAMFACINE [Concomitant]
  3. LISINOPRIL [Concomitant]
  4. OXCARBAZEPINE [Concomitant]
  5. PARAXERINE [Concomitant]
  6. TRAZODONE [Concomitant]
  7. VIT D3 [Concomitant]

REACTIONS (3)
  - Somnolence [None]
  - Therapy change [None]
  - Loss of personal independence in daily activities [None]

NARRATIVE: CASE EVENT DATE: 20220419
